FAERS Safety Report 19399976 (Version 1)
Quarter: 2021Q2

REPORT INFORMATION
  Report Type: Report from Study
  Country: AU (occurrence: AU)
  Receive Date: 20210610
  Receipt Date: 20210610
  Transmission Date: 20210717
  Serious: Yes (Other)
  Sender: FDA-Public Use
  Company Number: AU-INCYTE CORPORATION-2021IN004930

PATIENT

DRUGS (1)
  1. JAKAVI [Suspect]
     Active Substance: RUXOLITINIB
     Indication: MYELOFIBROSIS
     Dosage: UNK UNK, BID
     Route: 065

REACTIONS (12)
  - Thrombosis [Unknown]
  - Quality of life decreased [Unknown]
  - Fatigue [Unknown]
  - Feeling abnormal [Unknown]
  - Abnormal loss of weight [Unknown]
  - Abdominal discomfort [Unknown]
  - Drug ineffective [Unknown]
  - Early satiety [Unknown]
  - Pruritus [Unknown]
  - Disturbance in attention [Unknown]
  - Anaemia [Unknown]
  - Depression [Unknown]
